FAERS Safety Report 4636469-7 (Version None)
Quarter: 2005Q2

REPORT INFORMATION
  Report Type: 
  Country: None (occurrence: None)
  Receive Date: 20050413
  Receipt Date: 20050413
  Transmission Date: 20051028
  Serious: Yes (Death)
  Sender: FDA-Public Use
  Company Number: None

PATIENT
  Sex: Female
  Weight: 97.1 kg

DRUGS (2)
  1. CASODEX [Suspect]
     Dates: start: 20040917
  2. ZOLADEX [Suspect]

REACTIONS (6)
  - ABDOMINAL PAIN [None]
  - GENERALISED OEDEMA [None]
  - HEPATIC ENZYME INCREASED [None]
  - HEPATIC FAILURE [None]
  - PAIN [None]
  - RESPIRATORY DEPRESSION [None]
